FAERS Safety Report 8327509-2 (Version None)
Quarter: 2012Q2

REPORT INFORMATION
  Report Type: 
  Country: None (occurrence: None)
  Receive Date: 20120502
  Receipt Date: 20120424
  Transmission Date: 20120825
  Serious: Yes (Hospitalization)
  Sender: FDA-Public Use
  Company Number: US-BAYER-201039882NA

PATIENT
  Age: 51 Year
  Sex: Female
  Weight: 56.236 kg

DRUGS (16)
  1. YAZ [Suspect]
     Indication: MENSTRUAL CYCLE MANAGEMENT
     Dosage: UNK
     Dates: start: 20070901, end: 20090501
  2. PROZAC [Concomitant]
  3. JUICE PLUS [Concomitant]
  4. VITAMIN D [Concomitant]
  5. COPAXONE [Concomitant]
     Dosage: 20 MG, ONE INJECTION DAILY
     Route: 058
  6. TOPAMAX [Concomitant]
  7. MULTI-VITAMINS [Concomitant]
  8. LAMISIL [Concomitant]
  9. POTASSIUM CHLORIDE [Concomitant]
  10. YASMIN [Suspect]
     Indication: ACNE
     Dosage: UNK UNK, QD
     Route: 048
     Dates: start: 20051201, end: 20070901
  11. ATENOLOL [Concomitant]
  12. TERBINAFINE HCL [Concomitant]
  13. YAZ [Suspect]
     Indication: ACNE
     Dosage: UNK UNK, QD
     Route: 048
     Dates: start: 20070901, end: 20090506
  14. YASMIN [Suspect]
     Indication: MENSTRUAL CYCLE MANAGEMENT
     Dosage: UNK
     Dates: start: 20051201, end: 20070901
  15. HYDROCODONE BITARTRATE [Concomitant]
  16. BORIVAN [Concomitant]

REACTIONS (3)
  - ANXIETY [None]
  - PAIN [None]
  - PULMONARY EMBOLISM [None]
